FAERS Safety Report 9984280 (Version 1)
Quarter: 2014Q1

REPORT INFORMATION
  Report Type: Report from Study
  Country: US (occurrence: US)
  Receive Date: 20140307
  Receipt Date: 20140307
  Transmission Date: 20141002
  Serious: No
  Sender: FDA-Public Use
  Company Number: US-ALEXION-A201304670

PATIENT
  Sex: 0

DRUGS (2)
  1. SOLIRIS [Suspect]
     Indication: HAEMOLYTIC URAEMIC SYNDROME
     Dosage: Q 14 DAYS
     Route: 042
     Dates: end: 20131223
  2. SOLIRIS [Suspect]
     Dosage: Q 10 DAYS
     Route: 042
     Dates: start: 20131223

REACTIONS (3)
  - Blood pressure abnormal [Unknown]
  - Unevaluable event [Unknown]
  - Inappropriate schedule of drug administration [Unknown]
